FAERS Safety Report 5797061-4 (Version None)
Quarter: 2008Q3

REPORT INFORMATION
  Report Type: 
  Country: None (occurrence: None)
  Receive Date: 20080701
  Receipt Date: 20080507
  Transmission Date: 20090109
  Serious: Yes (Other)
  Sender: FDA-Public Use
  Company Number: JP-ASTRAZENECA-2008AP04999

PATIENT
  Age: 69 Year
  Weight: 67 kg

DRUGS (1)
  1. MEROPENEM [Suspect]
     Route: 042

REACTIONS (1)
  - DRUG ERUPTION [None]
